FAERS Safety Report 24895660 (Version 1)
Quarter: 2025Q1

REPORT INFORMATION
  Report Type: Spontaneous
  Country: IT (occurrence: IT)
  Receive Date: 20250128
  Receipt Date: 20250128
  Transmission Date: 20250409
  Serious: Yes (Other)
  Sender: GLAXOSMITHKLINE
  Company Number: IT-GSK-IT2025EME007375

PATIENT

DRUGS (2)
  1. DOSTARLIMAB [Suspect]
     Active Substance: DOSTARLIMAB
     Indication: Endometrial cancer metastatic
     Dates: start: 202404
  2. CARBOPLATIN\PACLITAXEL [Suspect]
     Active Substance: CARBOPLATIN\PACLITAXEL
     Indication: Endometrial cancer metastatic
     Dates: start: 202404

REACTIONS (12)
  - Metastases to lung [Unknown]
  - Mitral valve incompetence [Unknown]
  - Tricuspid valve incompetence [Unknown]
  - Pollakiuria [Unknown]
  - Ejection fraction decreased [Not Recovered/Not Resolved]
  - Dysphonia [Unknown]
  - Hypoaesthesia [Unknown]
  - Aortic valve sclerosis [Unknown]
  - Bundle branch block left [Unknown]
  - Extensor plantar response [Unknown]
  - Areflexia [Unknown]
  - Lymphadenopathy [Unknown]
